FAERS Safety Report 7301327-6 (Version None)
Quarter: 2011Q1

REPORT INFORMATION
  Report Type: 
  Country: None (occurrence: None)
  Receive Date: 20110113
  Receipt Date: 20101014
  Transmission Date: 20110831
  Serious: No
  Sender: FDA-Public Use
  Company Number: US-001348

PATIENT
  Sex: Female
  Weight: 76.6579 kg

DRUGS (9)
  1. LODINE XL [Concomitant]
  2. KUVAN [Suspect]
     Indication: PHENYLKETONURIA
     Dosage: (900 MG QD ORAL)
     Route: 048
  3. MULTI-VITAMINS [Concomitant]
  4. BENADRYL [Concomitant]
  5. FLAXSEED OIL [Concomitant]
  6. CALCIUM [Concomitant]
  7. NEXIUM [Concomitant]
  8. FIBRE, DIETARY [Concomitant]
  9. LOSARTAN POTASSIUM AND HYDROCHLOROTHIAZIDE [Concomitant]

REACTIONS (4)
  - TONSILLECTOMY [None]
  - OESOPHAGEAL OEDEMA [None]
  - GASTROOESOPHAGEAL REFLUX DISEASE [None]
  - OROPHARYNGEAL PAIN [None]
